FAERS Safety Report 9166758 (Version 1)
Quarter: 2012Q4

REPORT INFORMATION
  Report Type: 
  Country: FR (occurrence: FR)
  Receive Date: 20121128
  Receipt Date: 20121128
  Transmission Date: 20130627
  Serious: Yes (Hospitalization)
  Sender: FDA-Public Use
  Company Number: FR-BRACCO-000928

PATIENT
  Sex: Female

DRUGS (2)
  1. IOPAMIRON [Suspect]
     Indication: ARTHROGRAM
     Route: 014
     Dates: start: 201211, end: 201211
  2. HEXATRIONE [Concomitant]

REACTIONS (4)
  - Off label use [Unknown]
  - Pain in extremity [Recovered/Resolved]
  - Paraesthesia [Recovered/Resolved]
  - Hypoaesthesia [Recovered/Resolved]
